FAERS Safety Report 12973422 (Version 1)
Quarter: 2016Q4

REPORT INFORMATION
  Report Type: Spontaneous
  Country: US (occurrence: US)
  Receive Date: 20161124
  Receipt Date: 20161124
  Transmission Date: 20170207
  Serious: Yes (Hospitalization, Other)
  Sender: FDA-Public Use
  Company Number: US-WEST-WARD PHARMACEUTICALS CORP.-US-H14001-16-02499

PATIENT
  Age: 60 Year
  Sex: Male
  Weight: 79.3 kg

DRUGS (9)
  1. METHADONE [Suspect]
     Active Substance: METHADONE HYDROCHLORIDE
     Indication: PAIN
     Route: 065
     Dates: end: 201610
  2. MDV9300 [Suspect]
     Active Substance: PIDILIZUMAB
     Indication: PLASMA CELL MYELOMA
     Route: 042
     Dates: start: 20160811
  3. METHADONE [Suspect]
     Active Substance: METHADONE HYDROCHLORIDE
     Indication: PALLIATIVE CARE
     Route: 065
     Dates: start: 201610
  4. LENALIDOMIDE [Suspect]
     Active Substance: LENALIDOMIDE
     Route: 065
     Dates: start: 20160908
  5. LENALIDOMIDE [Suspect]
     Active Substance: LENALIDOMIDE
     Route: 065
     Dates: start: 20160920
  6. VANCOMYCIN [Suspect]
     Active Substance: VANCOMYCIN
     Indication: PRODUCT USED FOR UNKNOWN INDICATION
     Route: 065
  7. LENALIDOMIDE [Suspect]
     Active Substance: LENALIDOMIDE
     Indication: PLASMA CELL MYELOMA
     Route: 065
     Dates: start: 20160810, end: 20160907
  8. CLONAZEPAM. [Suspect]
     Active Substance: CLONAZEPAM
     Indication: PRODUCT USED FOR UNKNOWN INDICATION
     Route: 065
  9. ACETAMINOPHEN. [Concomitant]
     Active Substance: ACETAMINOPHEN
     Indication: PRODUCT USED FOR UNKNOWN INDICATION
     Route: 065

REACTIONS (8)
  - Rectal haemorrhage [Unknown]
  - Neutropenia [Unknown]
  - Haemorrhoidal haemorrhage [Unknown]
  - Confusional state [Recovered/Resolved]
  - Somnolence [Recovered/Resolved]
  - Acute kidney injury [Recovered/Resolved]
  - Memory impairment [Unknown]
  - Diarrhoea haemorrhagic [Unknown]

NARRATIVE: CASE EVENT DATE: 2016
